FAERS Safety Report 7412848-X (Version None)
Quarter: 2011Q2

REPORT INFORMATION
  Report Type: 
  Country: None (occurrence: None)
  Receive Date: 20110413
  Receipt Date: 20110407
  Transmission Date: 20111010
  Serious: Yes (Death)
  Sender: FDA-Public Use
  Company Number: B0712248A

PATIENT
  Sex: Female
  Weight: 55 kg

DRUGS (26)
  1. GRAN [Concomitant]
     Dates: start: 20090820
  2. ITRIZOLE [Concomitant]
     Dosage: 30ML PER DAY
     Route: 048
     Dates: end: 20090812
  3. BAKTAR [Concomitant]
     Dosage: 2IUAX PER DAY
     Route: 048
     Dates: end: 20090811
  4. ZOVIRAX [Concomitant]
     Dosage: 2000MG PER DAY
     Route: 048
     Dates: end: 20090818
  5. VFEND [Concomitant]
     Dosage: 600MG PER DAY
     Route: 042
     Dates: end: 20090811
  6. SAXIZON [Concomitant]
     Dosage: 400MG PER DAY
     Route: 042
     Dates: start: 20090811, end: 20090903
  7. FLUDARA [Concomitant]
     Indication: CORD BLOOD TRANSPLANT THERAPY
     Dosage: 25MGM2 PER DAY
     Route: 042
     Dates: start: 20090806, end: 20090810
  8. METHOTREXATE [Concomitant]
     Indication: IMMUNOSUPPRESSION
     Dosage: 23MG PER DAY
     Route: 065
     Dates: start: 20090814, end: 20090819
  9. CIPROFLOXACIN HCL [Concomitant]
     Dosage: 600MG PER DAY
     Route: 048
     Dates: end: 20090810
  10. GOODMIN [Concomitant]
     Dosage: .25MG PER DAY
     Route: 048
     Dates: end: 20090822
  11. ALKERAN [Suspect]
     Indication: CORD BLOOD TRANSPLANT THERAPY
     Dosage: 40MGM2 PER DAY
     Route: 042
     Dates: start: 20090810, end: 20090811
  12. AMLODIN [Concomitant]
     Dosage: 10MG PER DAY
     Route: 048
     Dates: end: 20090818
  13. FUROSEMIDE [Concomitant]
     Dosage: 80MG PER DAY
     Route: 042
     Dates: end: 20090831
  14. UNKNOWN MEDICATION [Concomitant]
     Dosage: 1.5G PER DAY
     Route: 042
     Dates: start: 20090810, end: 20090821
  15. PARIET [Concomitant]
     Dosage: 10MG PER DAY
     Route: 048
     Dates: end: 20090818
  16. CYCLOSPORINE [Concomitant]
     Indication: IMMUNOSUPPRESSION
     Dosage: 75MG PER DAY
     Route: 065
     Dates: start: 20090811
  17. MAINTATE [Concomitant]
     Dosage: 5MG PER DAY
     Route: 048
  18. MERCAZOLE [Concomitant]
     Dosage: 5MG PER DAY
     Route: 048
  19. BIOFERMIN R [Concomitant]
     Dosage: 6IUAX PER DAY
     Route: 048
     Dates: end: 20090820
  20. ASPARA K [Concomitant]
     Dosage: 1800MG PER DAY
     Route: 048
     Dates: start: 20090810, end: 20090812
  21. FUNGUARD [Concomitant]
     Dosage: 150MG PER DAY
     Route: 042
     Dates: start: 20090811
  22. MEDICON [Concomitant]
     Dosage: 45MG PER DAY
     Route: 048
     Dates: end: 20090819
  23. KYTRIL [Concomitant]
     Dosage: 6MG PER DAY
     Route: 042
     Dates: end: 20090812
  24. MAXIPIME [Concomitant]
     Dosage: 4G PER DAY
     Route: 042
     Dates: end: 20090811
  25. AMBISOME [Concomitant]
     Dosage: 125MG PER DAY
     Route: 042
  26. MAGNESIUM SULFATE [Concomitant]
     Dosage: 40ML PER DAY
     Route: 042
     Dates: start: 20090811

REACTIONS (2)
  - RESPIRATORY FAILURE [None]
  - SEPSIS [None]
